FAERS Safety Report 13023256 (Version 12)
Quarter: 2017Q3

REPORT INFORMATION
  Report Type: Spontaneous
  Country: US (occurrence: US)
  Receive Date: 20161213
  Receipt Date: 20170921
  Transmission Date: 20171127
  Serious: Yes (Other)
  Sender: FDA-Public Use
  Company Number: US-JNJFOC-20161208814

PATIENT
  Sex: Female
  Weight: 80.27 kg

DRUGS (11)
  1. ADEMPAS [Suspect]
     Active Substance: RIOCIGUAT
     Indication: PULMONARY HYPERTENSION
     Route: 048
     Dates: start: 20170118
  2. ADEMPAS [Suspect]
     Active Substance: RIOCIGUAT
     Indication: PULMONARY HYPERTENSION
     Route: 048
  3. ADCIRCA [Concomitant]
     Active Substance: TADALAFIL
     Route: 065
  4. XARELTO [Suspect]
     Active Substance: RIVAROXABAN
     Indication: PRODUCT USED FOR UNKNOWN INDICATION
     Route: 048
  5. ADEMPAS [Suspect]
     Active Substance: RIOCIGUAT
     Indication: PULMONARY HYPERTENSION
     Route: 048
     Dates: start: 20161111
  6. ADEMPAS [Suspect]
     Active Substance: RIOCIGUAT
     Indication: PULMONARY HYPERTENSION
     Route: 048
  7. ADEMPAS [Suspect]
     Active Substance: RIOCIGUAT
     Indication: PULMONARY HYPERTENSION
     Route: 048
  8. ADEMPAS [Suspect]
     Active Substance: RIOCIGUAT
     Indication: PULMONARY HYPERTENSION
     Route: 048
  9. ADEMPAS [Suspect]
     Active Substance: RIOCIGUAT
     Indication: PULMONARY HYPERTENSION
     Route: 048
  10. ADEMPAS [Suspect]
     Active Substance: RIOCIGUAT
     Indication: PULMONARY HYPERTENSION
     Route: 048
  11. VELETRI [Concomitant]
     Active Substance: EPOPROSTENOL
     Route: 065

REACTIONS (28)
  - Feeling hot [Recovered/Resolved]
  - Hyperhidrosis [Unknown]
  - Salivary hypersecretion [Unknown]
  - Application site vesicles [Not Recovered/Not Resolved]
  - Headache [Unknown]
  - Oedema peripheral [Unknown]
  - Asthenia [Unknown]
  - Sensation of foreign body [Unknown]
  - Nausea [Not Recovered/Not Resolved]
  - Rash [Recovering/Resolving]
  - Application site rash [Unknown]
  - Hypotension [Unknown]
  - Hypophagia [Unknown]
  - Application site irritation [Not Recovered/Not Resolved]
  - Dyspepsia [Unknown]
  - Infusion site vesicles [Unknown]
  - Oropharyngeal discomfort [Unknown]
  - Decreased appetite [Unknown]
  - Pain in jaw [Unknown]
  - Constipation [Unknown]
  - Pruritus [Recovering/Resolving]
  - Fatigue [Unknown]
  - Nausea [Unknown]
  - Diastolic hypotension [Unknown]
  - Back pain [Unknown]
  - Cold sweat [Unknown]
  - Productive cough [Unknown]
  - Infusion site pruritus [Unknown]
